FAERS Safety Report 7028303-5 (Version None)
Quarter: 2010Q4

REPORT INFORMATION
  Report Type: 
  Country: None (occurrence: None)
  Receive Date: 20101001
  Receipt Date: 20101001
  Transmission Date: 20110411
  Serious: Yes (Hospitalization)
  Sender: FDA-Public Use
  Company Number: None

PATIENT
  Age: 61 Year
  Sex: Male
  Weight: 48.31 kg

DRUGS (2)
  1. ACTIVASE [Suspect]
     Indication: ANGIOPATHY
     Dosage: 0.5 MG PER HOUR IV
     Route: 042
     Dates: start: 20100909, end: 20100912
  2. ACTIVASE [Suspect]
     Indication: SURGERY
     Dosage: 0.5 MG PER HOUR IV
     Route: 042
     Dates: start: 20100909, end: 20100912

REACTIONS (3)
  - CATHETER SITE RELATED REACTION [None]
  - VASCULAR OCCLUSION [None]
  - VASCULAR PSEUDOANEURYSM [None]
